FAERS Safety Report 8139469-8 (Version None)
Quarter: 2012Q1

REPORT INFORMATION
  Report Type: 
  Country: None (occurrence: None)
  Receive Date: 20120215
  Receipt Date: 20120206
  Transmission Date: 20120608
  Serious: Yes (Hospitalization)
  Sender: FDA-Public Use
  Company Number: US-ROCHE-1025972

PATIENT
  Sex: Male
  Weight: 113.6 kg

DRUGS (21)
  1. TARCEVA [Suspect]
     Indication: HEPATIC NEOPLASM MALIGNANT
     Route: 048
     Dates: start: 20111206, end: 20111213
  2. CARDURA [Concomitant]
  3. COREG [Concomitant]
  4. FERROUS SULFATE TAB [Concomitant]
  5. LORATADINE [Concomitant]
  6. DILTIAZEM HCL [Concomitant]
  7. HYDROCHLOROTHIAZIDE [Concomitant]
  8. TRIAMCINOLONE [Concomitant]
  9. AVASTIN [Suspect]
     Dates: start: 20120105, end: 20120125
  10. ZOCOR [Concomitant]
  11. CIPROFLOXACIN [Concomitant]
  12. LIDODERM [Concomitant]
  13. METFORMIN HCL [Concomitant]
  14. POTASSIUM CHLORIDE [Concomitant]
  15. OXYCODONE HCL [Concomitant]
  16. AMBIEN [Concomitant]
  17. AVASTIN [Suspect]
     Indication: HEPATIC NEOPLASM MALIGNANT
     Route: 042
     Dates: start: 20111206, end: 20111213
  18. TARCEVA [Suspect]
     Dates: start: 20120105, end: 20120125
  19. ATARAX [Concomitant]
  20. DIGOXIN [Concomitant]
  21. TESSALON [Concomitant]

REACTIONS (4)
  - ISCHAEMIC STROKE [None]
  - DISEASE PROGRESSION [None]
  - HEART RATE INCREASED [None]
  - ATRIAL FIBRILLATION [None]
